FAERS Safety Report 7320789-1 (Version None)
Quarter: 2011Q1

REPORT INFORMATION
  Report Type: 
  Country: None (occurrence: None)
  Receive Date: 20110228
  Receipt Date: 20110218
  Transmission Date: 20110831
  Serious: Yes (Hospitalization, Other)
  Sender: FDA-Public Use
  Company Number: FR-JNJFOC-20110104696

PATIENT
  Age: 76 Year
  Sex: Male

DRUGS (33)
  1. PARACETAMOL [Suspect]
     Indication: ANALGESIC THERAPY
     Route: 065
  2. ROSUVASTATIN [Concomitant]
  3. ASPEGIC 325 [Concomitant]
  4. PANTOPRAZOLE [Concomitant]
  5. MORPHINE [Concomitant]
  6. DOBUTAMINE HCL [Concomitant]
  7. TAVANIC [Suspect]
     Indication: LUNG DISORDER
     Route: 048
  8. CLAFORAN [Suspect]
     Indication: PULMONARY SEPSIS
     Route: 042
  9. VANCOMYCINE [Suspect]
     Indication: PULMONARY SEPSIS
     Route: 065
  10. TAVANIC [Suspect]
     Indication: PULMONARY SEPSIS
     Route: 048
  11. ALLOPURINOL [Concomitant]
  12. NICARDIPINE HYDROCHLORIDE [Concomitant]
  13. TAHOR [Concomitant]
  14. TAVANIC [Suspect]
     Route: 048
  15. FLUINDIONE [Concomitant]
  16. LASIX [Concomitant]
  17. HYDROCORTISONE [Concomitant]
  18. LIDOCAINE [Concomitant]
  19. METOPROLOL [Concomitant]
  20. TAVANIC [Suspect]
     Route: 048
  21. HYPNOTICS AND SEDATIVES [Concomitant]
     Route: 065
  22. HEPARIN [Concomitant]
  23. CATECHOLAMINES NOS [Concomitant]
     Route: 065
  24. KARDEGIC [Concomitant]
  25. EPROSARTAN [Concomitant]
  26. ACLOTINE [Concomitant]
  27. NORADRENALINE [Concomitant]
  28. MIDAZOLAM HCL [Concomitant]
  29. ANESTHETICS [Concomitant]
  30. METFORMIN HYDROCHLORIDE [Concomitant]
  31. HEXAQUINE [Concomitant]
  32. VITAMIN K TAB [Concomitant]
  33. HUMULINE REGULAR [Concomitant]

REACTIONS (2)
  - INCORRECT DOSE ADMINISTERED [None]
  - CYTOLYTIC HEPATITIS [None]
